FAERS Safety Report 7770855-1 (Version None)
Quarter: 2011Q3

REPORT INFORMATION
  Report Type: 
  Country: None (occurrence: None)
  Receive Date: 20110922
  Receipt Date: 20100920
  Transmission Date: 20111222
  Serious: No
  Sender: FDA-Public Use
  Company Number: US-ASTRAZENECA-2010SE44146

PATIENT
  Age: 87 Year
  Sex: Female

DRUGS (4)
  1. SEROQUEL [Suspect]
     Route: 048
     Dates: end: 20090101
  2. SEROQUEL [Suspect]
     Route: 048
  3. SEROQUEL [Suspect]
     Indication: BIPOLAR DISORDER
     Route: 048
     Dates: start: 20080101
  4. LITHIUM CARBONATE [Concomitant]

REACTIONS (7)
  - COGNITIVE DISORDER [None]
  - HOSTILITY [None]
  - ASTHENIA [None]
  - FEELING ABNORMAL [None]
  - DYSPHONIA [None]
  - INCONTINENCE [None]
  - TARDIVE DYSKINESIA [None]
